FAERS Safety Report 8325444-7 (Version None)
Quarter: 2012Q2

REPORT INFORMATION
  Report Type: 
  Country: None (occurrence: None)
  Receive Date: 20120501
  Receipt Date: 20120424
  Transmission Date: 20120825
  Serious: Yes (Other)
  Sender: FDA-Public Use
  Company Number: US-PFIZER INC-2012104934

PATIENT
  Sex: Female
  Weight: 79.3 kg

DRUGS (3)
  1. XANAX [Concomitant]
     Dosage: UNK
  2. NARDIL [Suspect]
     Indication: DEPRESSION
  3. NARDIL [Suspect]
     Indication: PANIC DISORDER
     Dosage: 15 MG, 3X/DAY
     Route: 048

REACTIONS (5)
  - BRONCHITIS CHRONIC [None]
  - WEIGHT DECREASED [None]
  - DYSPNOEA [None]
  - ASTHMA [None]
  - HYPERSENSITIVITY [None]
